FAERS Safety Report 8328946-2 (Version None)
Quarter: 2012Q2

REPORT INFORMATION
  Report Type: 
  Country: None (occurrence: None)
  Receive Date: 20120502
  Receipt Date: 20101005
  Transmission Date: 20120825
  Serious: No
  Sender: FDA-Public Use
  Company Number: US-TEVA-2010005283

PATIENT
  Sex: Female
  Weight: 52.21 kg

DRUGS (4)
  1. YASMIN [Concomitant]
     Dates: start: 20070101
  2. NUVIGIL [Suspect]
     Dosage: 250 MILLIGRAM;
     Route: 048
     Dates: start: 20100601
  3. NUVIGIL [Suspect]
     Indication: HYPERSOMNIA
     Dosage: 150 MILLIGRAM;
     Route: 048
     Dates: start: 20091101, end: 20100601
  4. CYMBALTA [Concomitant]
     Dates: start: 20090401

REACTIONS (2)
  - ANXIETY [None]
  - INSOMNIA [None]
